FAERS Safety Report 4675347-4 (Version None)
Quarter: 2005Q2

REPORT INFORMATION
  Report Type: 
  Country: None (occurrence: None)
  Receive Date: 20050527
  Receipt Date: 20050127
  Transmission Date: 20051028
  Serious: Yes (Life-Threatening)
  Sender: FDA-Public Use
  Company Number: US-BRISTOL-MYERS SQUIBB COMPANY-12840757

PATIENT
  Age: 8 Year
  Sex: Male

DRUGS (1)
  1. ABILIFY [Suspect]
     Indication: ANGER
     Route: 048
     Dates: start: 20041201

REACTIONS (1)
  - NEUROLEPTIC MALIGNANT SYNDROME [None]
